FAERS Safety Report 23909375 (Version 2)
Quarter: 2024Q2

REPORT INFORMATION
  Report Type: Report from Study
  Country: CA (occurrence: CA)
  Receive Date: 20240528
  Receipt Date: 20240605
  Transmission Date: 20240716
  Serious: Yes (Other)
  Sender: FDA-Public Use
  Company Number: CA-BAYER-2024A072726

PATIENT
  Age: 66 Year
  Sex: Female

DRUGS (2)
  1. STIVARGA [Suspect]
     Active Substance: REGORAFENIB\REGORAFENIB MONOHYDRATE
     Indication: Colorectal cancer
     Dosage: 80 MG (1 WEEK))
     Route: 048
     Dates: start: 20240503
  2. STIVARGA [Suspect]
     Active Substance: REGORAFENIB\REGORAFENIB MONOHYDRATE
     Indication: Colorectal cancer
     Dosage: 120 MG
     Route: 048

REACTIONS (8)
  - Dyspnoea at rest [Unknown]
  - Blister [Unknown]
  - Pain in extremity [Unknown]
  - Fatigue [Unknown]
  - Palmar-plantar erythrodysaesthesia syndrome [Unknown]
  - Palliative care [None]
  - Drug intolerance [Unknown]
  - Off label use [None]

NARRATIVE: CASE EVENT DATE: 20240501
